FAERS Safety Report 8917317 (Version 1)
Quarter: 2012Q4

REPORT INFORMATION
  Report Type: 
  Country: FR (occurrence: FR)
  Receive Date: 20121120
  Receipt Date: 20121120
  Transmission Date: 20130627
  Serious: Yes (Hospitalization, Other)
  Sender: FDA-Public Use
  Company Number: FR-MERCK-1211FRA005936

PATIENT
  Age: 22 Year
  Sex: Female

DRUGS (1)
  1. AERIUS [Suspect]
     Indication: PRURITUS
     Dosage: 5 mg, qd
     Route: 048
     Dates: start: 2005

REACTIONS (5)
  - Angioedema [Unknown]
  - Malaise [Unknown]
  - Loss of consciousness [Unknown]
  - Hypotension [Unknown]
  - Anaphylactic shock [Unknown]
